FAERS Safety Report 6192240-9 (Version None)
Quarter: 2009Q2

REPORT INFORMATION
  Report Type: 
  Country: None (occurrence: None)
  Receive Date: 20090515
  Receipt Date: 20090505
  Transmission Date: 20091009
  Serious: Yes (Hospitalization)
  Sender: FDA-Public Use
  Company Number: CZ-B.I. PHARMACEUTICALS,INC./RIDGEFIELD-2009-AP-00106AP

PATIENT
  Sex: Female

DRUGS (8)
  1. AGGRENOX [Suspect]
     Indication: OFF LABEL USE
     Dosage: 200/25 MG
     Route: 048
     Dates: start: 20090415, end: 20090415
  2. ANOPYRIN (ACETYSALICYLICACID) [Suspect]
     Dosage: 100MG
  3. PRESTARIUM NEO FORTE (PERINDOPRIL) [Concomitant]
  4. BETALOC SR (METAPROLOL) [Concomitant]
  5. NEUROL (ALPRAZOLAM) [Concomitant]
     Dosage: PRN
  6. FURON (FUROSEMID) [Concomitant]
  7. ESPUMISAN (SIMETHICONUM) [Concomitant]
     Dosage: PRN
  8. 99MTC (TECHNECIUM) [Concomitant]
     Indication: SCINTIGRAPHY

REACTIONS (4)
  - BODY TEMPERATURE INCREASED [None]
  - OEDEMA PERIPHERAL [None]
  - PRURITUS [None]
  - VASCULITIS [None]
